FAERS Safety Report 19724295 (Version 1)
Quarter: 2021Q3

REPORT INFORMATION
  Report Type: Spontaneous
  Country: JP (occurrence: JP)
  Receive Date: 20210820
  Receipt Date: 20210820
  Transmission Date: 20211014
  Serious: Yes (Hospitalization)
  Sender: FDA-Public Use
  Company Number: JP-TEVA-2021-JP-1944525

PATIENT
  Age: 76 Year
  Sex: Female

DRUGS (1)
  1. WARFARIN [Suspect]
     Active Substance: WARFARIN
     Indication: DEEP VEIN THROMBOSIS
     Dosage: 2.25 MILLIGRAM DAILY; RECEIVING FOR 13 YEARS
     Route: 065

REACTIONS (2)
  - Pancreatic haemorrhage [Recovering/Resolving]
  - International normalised ratio increased [Unknown]
